FAERS Safety Report 4305116-6 (Version None)
Quarter: 2004Q1

REPORT INFORMATION
  Report Type: 
  Country: None (occurrence: None)
  Receive Date: 20040225
  Receipt Date: 20040225
  Transmission Date: 20041129
  Serious: Yes (Life-Threatening, Hospitalization)
  Sender: FDA-Public Use
  Company Number: None

PATIENT
  Age: 22 Year
  Sex: Female

DRUGS (1)
  1. ACETAMINOPHEN [Suspect]
     Dosage: 1200 MG PO
     Route: 048
     Dates: start: 20031103

REACTIONS (4)
  - INTENTIONAL OVERDOSE [None]
  - INTENTIONAL SELF-INJURY [None]
  - MULTIPLE DRUG OVERDOSE [None]
  - RESPIRATORY RATE INCREASED [None]
